FAERS Safety Report 6978868-4 (Version None)
Quarter: 2010Q3

REPORT INFORMATION
  Report Type: 
  Country: None (occurrence: None)
  Receive Date: 20100913
  Receipt Date: 20100902
  Transmission Date: 20110219
  Serious: Yes (Death, Hospitalization)
  Sender: FDA-Public Use
  Company Number: CA-JNJFOC-20091101190

PATIENT
  Sex: Male
  Weight: 67 kg

DRUGS (7)
  1. REMICADE [Suspect]
     Indication: RHEUMATOID ARTHRITIS
     Route: 042
     Dates: start: 20090903, end: 20091015
  2. REMICADE [Suspect]
     Route: 042
     Dates: start: 20090903, end: 20091015
  3. REMICADE [Suspect]
     Route: 042
     Dates: start: 20090903, end: 20091015
  4. BENADRYL [Concomitant]
     Indication: PREMEDICATION
     Route: 042
  5. HYDROCORTISONE [Concomitant]
     Indication: PREMEDICATION
     Route: 042
  6. PREDNISONE [Concomitant]
  7. ARAVA [Concomitant]

REACTIONS (2)
  - DISSEMINATED TUBERCULOSIS [None]
  - SEPSIS [None]
